FAERS Safety Report 22286587 (Version 1)
Quarter: 2023Q2

REPORT INFORMATION
  Report Type: Spontaneous
  Country: GB (occurrence: GB)
  Receive Date: 20230505
  Receipt Date: 20230505
  Transmission Date: 20230722
  Serious: Yes (Other)
  Sender: FDA-Public Use
  Company Number: GB-MHRA-MED-202304201457398020-GCVPH

PATIENT
  Age: 65 Year
  Sex: Female
  Weight: 95 kg

DRUGS (1)
  1. METRONIDAZOLE [Suspect]
     Active Substance: METRONIDAZOLE
     Indication: Gingival abscess
     Dosage: 200MG 3 TIMES A DAY(1X200MG THREE TIMES A DAY FOR SEVEN DAYS; ;)
     Route: 065
     Dates: start: 20230417, end: 20230419

REACTIONS (1)
  - Illness [Recovering/Resolving]

NARRATIVE: CASE EVENT DATE: 20230419
